FAERS Safety Report 6934646-3 (Version None)
Quarter: 2010Q3

REPORT INFORMATION
  Report Type: 
  Country: None (occurrence: None)
  Receive Date: 20100820
  Receipt Date: 20100811
  Transmission Date: 20110219
  Serious: Yes (Hospitalization)
  Sender: FDA-Public Use
  Company Number: US-DX529-2010DX000037

PATIENT
  Age: 21 Year
  Sex: Female

DRUGS (3)
  1. KALBITOR [Suspect]
     Indication: HEREDITARY ANGIOEDEMA
     Dates: start: 20100401
  2. LYSTEDA [Concomitant]
     Indication: PRODUCT USED FOR UNKNOWN INDICATION
  3. DIABETES MEDICATION (NOS) [Suspect]
     Indication: DIABETES PROPHYLAXIS

REACTIONS (1)
  - SEPSIS [None]
